FAERS Safety Report 9746286 (Version 1)
Quarter: 2013Q4

REPORT INFORMATION
  Report Type: Spontaneous
  Country: US (occurrence: None)
  Receive Date: 20131209
  Receipt Date: 20131209
  Transmission Date: 20140711
  Serious: No
  Sender: FDA-Public Use
  Company Number: None

PATIENT
  Age: 35 Year
  Sex: Male
  Weight: 72.58 kg

DRUGS (1)
  1. FINASTERIDE [Suspect]
     Indication: ALOPECIA
     Dosage: 1/4 OF 5 MG TABLET ONCE DAILY TAKEN BY MOUTH
     Route: 048
     Dates: start: 20131120, end: 20131204

REACTIONS (3)
  - Libido decreased [None]
  - Ejaculation disorder [None]
  - Erectile dysfunction [None]
